FAERS Safety Report 10348286 (Version 2)
Quarter: 2014Q3

REPORT INFORMATION
  Report Type: Report from Study
  Country: ES (occurrence: None)
  Receive Date: 20140725
  Receipt Date: 20140805
  Transmission Date: 20150326
  Serious: Yes (Death, Life-Threatening, Hospitalization)
  Sender: FDA-Public Use
  Company Number: KAD201407-000791

PATIENT
  Age: 53 Year
  Sex: Male
  Weight: 58.4 kg

DRUGS (7)
  1. OMEPRAZOLE (OMEPRAZOLE) (OMEPRAZOLE) [Concomitant]
     Active Substance: OMEPRAZOLE
  2. RIBAVIRIN. [Suspect]
     Active Substance: RIBAVIRIN
     Route: 048
     Dates: start: 20140618, end: 20140707
  3. SOFOSBUVIR/LEDIPASVIR [Suspect]
     Active Substance: LEDIPASVIR\SOFOSBUVIR
     Dosage: 1 DOSAGE FORM, ORAL
     Route: 048
     Dates: start: 20140618, end: 20140707
  4. PROGRAF [Concomitant]
     Active Substance: TACROLIMUS\TACROLIMUS ANHYDROUS
  5. ALPRAZOLAM (ALPRAZOLAM) (ALPRAZOLAM) [Concomitant]
     Active Substance: ALPRAZOLAM
  6. SEGURIL [Concomitant]
     Active Substance: FUROSEMIDE
  7. ALDACTONE [Concomitant]
     Active Substance: SPIRONOLACTONE

REACTIONS (9)
  - Refusal of treatment by patient [None]
  - Hepatic function abnormal [None]
  - Disease progression [None]
  - Dehydration [None]
  - Mesenteric vein thrombosis [None]
  - Intestinal ischaemia [None]
  - Haemorrhage [None]
  - Renal impairment [None]
  - Encephalopathy [None]

NARRATIVE: CASE EVENT DATE: 20140519
